FAERS Safety Report 17436680 (Version 1)
Quarter: 2020Q1

REPORT INFORMATION
  Report Type: Spontaneous
  Country: US (occurrence: US)
  Receive Date: 20200219
  Receipt Date: 20200219
  Transmission Date: 20200409
  Serious: No
  Sender: FDA-Public Use
  Company Number: US-SA-2020SA040596

PATIENT
  Age: 69 Year
  Sex: Male

DRUGS (1)
  1. TOUJEO [Suspect]
     Active Substance: INSULIN GLARGINE
     Indication: TYPE 2 DIABETES MELLITUS
     Dosage: 15-18 UNITS, EACH DAY AT BEDTIME
     Route: 065
     Dates: start: 201909

REACTIONS (3)
  - Visual impairment [Unknown]
  - Blood glucose abnormal [Unknown]
  - Intentional product misuse [Unknown]
